FAERS Safety Report 24793276 (Version 1)
Quarter: 2024Q4

REPORT INFORMATION
  Report Type: Spontaneous
  Country: FR (occurrence: FR)
  Receive Date: 20241231
  Receipt Date: 20241231
  Transmission Date: 20250115
  Serious: Yes (Other)
  Sender: BIOGEN
  Company Number: None

PATIENT
  Age: 22 Year
  Sex: Female
  Weight: 56.5 kg

DRUGS (1)
  1. TYSABRI [Suspect]
     Active Substance: NATALIZUMAB
     Indication: Multiple sclerosis
     Route: 050
     Dates: start: 20240404, end: 202407

REACTIONS (3)
  - Autoimmune haemolytic anaemia [Not Recovered/Not Resolved]
  - Maternal exposure during pregnancy [Recovered/Resolved]
  - Maternal exposure during pregnancy [Recovered/Resolved]

NARRATIVE: CASE EVENT DATE: 20240101
